FAERS Safety Report 7900114-5 (Version None)
Quarter: 2011Q4

REPORT INFORMATION
  Report Type: 
  Country: None (occurrence: None)
  Receive Date: 20111108
  Receipt Date: 20111031
  Transmission Date: 20120403
  Serious: No
  Sender: FDA-Public Use
  Company Number: US-BIOGENIDEC-2011BI005076

PATIENT
  Age: 50 Year
  Sex: Female

DRUGS (2)
  1. TYSABRI [Suspect]
     Indication: MULTIPLE SCLEROSIS
     Route: 042
     Dates: start: 20101206, end: 20110513
  2. AVONEX [Concomitant]
     Indication: MULTIPLE SCLEROSIS
     Route: 030
     Dates: start: 20070226

REACTIONS (8)
  - MUSCULAR WEAKNESS [None]
  - FATIGUE [None]
  - PAIN IN EXTREMITY [None]
  - DIZZINESS [None]
  - SLUGGISHNESS [None]
  - VULVOVAGINAL PRURITUS [None]
  - COGNITIVE DISORDER [None]
  - HEADACHE [None]
